FAERS Safety Report 11464252 (Version 1)
Quarter: 2015Q3

REPORT INFORMATION
  Report Type: Spontaneous
  Country: US (occurrence: US)
  Receive Date: 20150831
  Receipt Date: 20150831
  Transmission Date: 20151125
  Serious: No
  Sender: FDA-Public Use
  Company Number: US-ELI_LILLY_AND_COMPANY-US201107006716

PATIENT
  Age: 78 Year
  Sex: Female

DRUGS (2)
  1. CYMBALTA [Suspect]
     Active Substance: DULOXETINE HYDROCHLORIDE
     Dosage: 60 MG, QD
  2. CYMBALTA [Suspect]
     Active Substance: DULOXETINE HYDROCHLORIDE
     Indication: NERVOUSNESS
     Dosage: 30 MG, QD

REACTIONS (14)
  - Pubic pain [Unknown]
  - Blood potassium decreased [Unknown]
  - Hypersomnia [Recovering/Resolving]
  - Renal disorder [Unknown]
  - Chromaturia [Unknown]
  - Arthralgia [Unknown]
  - Visual acuity reduced [Recovered/Resolved]
  - Memory impairment [Not Recovered/Not Resolved]
  - Muscle spasms [Recovering/Resolving]
  - Dysuria [Unknown]
  - Eye pain [Not Recovered/Not Resolved]
  - Bladder disorder [Unknown]
  - Fall [Recovered/Resolved]
  - Arthritis [Unknown]
